FAERS Safety Report 20327625 (Version 1)
Quarter: 2022Q1

REPORT INFORMATION
  Report Type: Spontaneous
  Country: US (occurrence: None)
  Receive Date: 20220111
  Receipt Date: 20220111
  Transmission Date: 20220423
  Serious: Yes (unspecified)
  Sender: FDA-Public Use
  Company Number: None

PATIENT
  Age: 76 Year
  Sex: Female
  Weight: 91.5 kg

DRUGS (3)
  1. TOCILIZUMAB [Suspect]
     Active Substance: TOCILIZUMAB
     Indication: Rheumatoid arthritis
     Dosage: FREQUENCY : MONTHLY;?
     Route: 042
     Dates: start: 20220104
  2. METHYLPREDNISOLONE [Concomitant]
     Active Substance: METHYLPREDNISOLONE
     Dates: start: 20220104
  3. epoetin-alfa [Concomitant]
     Dates: start: 20211008

REACTIONS (9)
  - Feeling hot [None]
  - Nausea [None]
  - Flushing [None]
  - Flushing [None]
  - Infusion related reaction [None]
  - Abdominal pain upper [None]
  - Refusal of treatment by patient [None]
  - Blood pressure increased [None]
  - Hypersensitivity [None]

NARRATIVE: CASE EVENT DATE: 20220104
